FAERS Safety Report 21990104 (Version 14)
Quarter: 2024Q2

REPORT INFORMATION
  Report Type: Spontaneous
  Country: BR (occurrence: BR)
  Receive Date: 20230214
  Receipt Date: 20240401
  Transmission Date: 20240716
  Serious: Yes (Other)
  Sender: FDA-Public Use
  Company Number: BR-MYLANLABS-2022M1114704

PATIENT
  Sex: Female
  Weight: 52 kg

DRUGS (18)
  1. ALPRAZOLAM [Suspect]
     Active Substance: ALPRAZOLAM
     Indication: Depression
     Dosage: 2 MILLIGRAM, BID (2MG (2 TABLETS) IN MORNING AND 2MG (2 TABLETS) IN AFTERNOON)
     Route: 048
  2. ALPRAZOLAM [Suspect]
     Active Substance: ALPRAZOLAM
     Indication: Anxiety
     Dosage: 2 MILLIGRAM, BID (2 MILLIGRAM, BID START DATE: SEP-2022)
     Route: 048
  3. ALPRAZOLAM [Suspect]
     Active Substance: ALPRAZOLAM
     Indication: Sleep disorder
     Dosage: 4.5 MILLIGRAM QD (2 TABLETS IN THE MORNING AND 2 TABLETS IN THE AFTERNOON)
     Route: 048
  4. ALPRAZOLAM [Suspect]
     Active Substance: ALPRAZOLAM
     Indication: Nervous system disorder
     Dosage: UNK(START DATE: JAN-2022)
     Route: 065
  5. ALPRAZOLAM [Suspect]
     Active Substance: ALPRAZOLAM
     Dosage: 2 MILLIGRAM, AM (START DATE: 2013)
     Route: 048
     Dates: end: 2022
  6. ALPRAZOLAM [Suspect]
     Active Substance: ALPRAZOLAM
     Dosage: 2.5 MILLIGRAM, PM (START DATE:2013)
     Route: 048
     Dates: end: 2022
  7. ALPRAZOLAM [Suspect]
     Active Substance: ALPRAZOLAM
     Dosage: 1 DOSAGE FORM (START DATE: 2022)ONE TABLET JUST WHEN NEEDED)
     Route: 065
  8. ALPRAZOLAM [Suspect]
     Active Substance: ALPRAZOLAM
     Dosage: UNK(START DATE: UNKNOWN DATE IN JAN-2022)
     Route: 065
  9. ALPRAZOLAM [Suspect]
     Active Substance: ALPRAZOLAM
     Dosage: 2 MILLIGRAM, BID (START DATE: 27-MAR-2023)
     Route: 065
  10. ALPRAZOLAM [Suspect]
     Active Substance: ALPRAZOLAM
     Dosage: 4 MILLIGRAM, QD (START DATE: 27-MAR-2023)
     Route: 065
     Dates: end: 20230327
  11. ALPRAZOLAM [Suspect]
     Active Substance: ALPRAZOLAM
     Indication: Depression
     Dosage: 2 MILLIGRAM, BID (START DATE: DEC-2021,2 MILLIGRAM, BID)
     Route: 048
     Dates: end: 202201
  12. ALPRAZOLAM [Suspect]
     Active Substance: ALPRAZOLAM
     Indication: Anxiety
     Dosage: 2.5 MILLIGRAM, BID (START DATE: DEC-2021)
     Route: 048
     Dates: end: 202201
  13. ALPRAZOLAM [Suspect]
     Active Substance: ALPRAZOLAM
     Indication: Sleep disorder
     Dosage: 4 MILLIGRAM
     Route: 065
  14. ALPRAZOLAM [Suspect]
     Active Substance: ALPRAZOLAM
     Indication: Nervous system disorder
     Dosage: 1 MILLIGRAM, WHEN NEEDED
     Route: 065
     Dates: start: 2003, end: 2013
  15. ALPRAZOLAM [Suspect]
     Active Substance: ALPRAZOLAM
     Dosage: 2 MILLIGRAM (START DATE:2011)
     Route: 065
  16. ALPRAZOLAM [Suspect]
     Active Substance: ALPRAZOLAM
     Dosage: 1 MILLIGRAM, BID(START DATE: 2022,2 TAB IN MORNING, 2 TAB AND HALF IN AFTERNOON)
     Route: 065
  17. ALPRAZOLAM [Suspect]
     Active Substance: ALPRAZOLAM
     Dosage: 4.5 MILLIGRAM (2 TABLETS IN THE MORNING AND 2 AND A HALF AT NIGHT)
     Route: 065
     Dates: start: 20230327, end: 20230327
  18. AZITHROMYCIN [Suspect]
     Active Substance: AZITHROMYCIN
     Indication: Sinusitis
     Dosage: UNK
     Route: 065
     Dates: start: 202211, end: 202212

REACTIONS (57)
  - Aortic arteriosclerosis [Not Recovered/Not Resolved]
  - Carotid arteriosclerosis [Not Recovered/Not Resolved]
  - Immunodeficiency [Not Recovered/Not Resolved]
  - Coronary artery disease [Not Recovered/Not Resolved]
  - Reaction to excipient [Not Recovered/Not Resolved]
  - COVID-19 [Not Recovered/Not Resolved]
  - Influenza [Not Recovered/Not Resolved]
  - Sinusitis [Not Recovered/Not Resolved]
  - Abdominal pain [Not Recovered/Not Resolved]
  - Purpura [Not Recovered/Not Resolved]
  - Abdominal distension [Not Recovered/Not Resolved]
  - Blood pressure fluctuation [Not Recovered/Not Resolved]
  - Alopecia [Not Recovered/Not Resolved]
  - Dyspnoea [Not Recovered/Not Resolved]
  - Dyspepsia [Not Recovered/Not Resolved]
  - Blood pressure increased [Not Recovered/Not Resolved]
  - Vitamin D decreased [Not Recovered/Not Resolved]
  - Eating disorder [Not Recovered/Not Resolved]
  - Fear [Not Recovered/Not Resolved]
  - Palpitations [Not Recovered/Not Resolved]
  - Hepatic mass [Not Recovered/Not Resolved]
  - Back pain [Not Recovered/Not Resolved]
  - Renal mass [Not Recovered/Not Resolved]
  - Erythema [Not Recovered/Not Resolved]
  - Swelling face [Not Recovered/Not Resolved]
  - Myalgia [Not Recovered/Not Resolved]
  - Malaise [Unknown]
  - Dermatitis allergic [Not Recovered/Not Resolved]
  - Flatulence [Not Recovered/Not Resolved]
  - Ageusia [Not Recovered/Not Resolved]
  - Anosmia [Not Recovered/Not Resolved]
  - Hepatomegaly [Not Recovered/Not Resolved]
  - Gastritis [Not Recovered/Not Resolved]
  - Abdominal pain upper [Not Recovered/Not Resolved]
  - Muscular weakness [Not Recovered/Not Resolved]
  - Tremor [Not Recovered/Not Resolved]
  - Drug withdrawal syndrome [Recovered/Resolved]
  - Dizziness [Not Recovered/Not Resolved]
  - Abdominal discomfort [Not Recovered/Not Resolved]
  - Anxiety [Not Recovered/Not Resolved]
  - Weight decreased [Not Recovered/Not Resolved]
  - Headache [Not Recovered/Not Resolved]
  - Nausea [Not Recovered/Not Resolved]
  - Insomnia [Not Recovered/Not Resolved]
  - Sleep disorder [Not Recovered/Not Resolved]
  - Diarrhoea [Recovered/Resolved]
  - Intentional product use issue [Not Recovered/Not Resolved]
  - Overdose [Not Recovered/Not Resolved]
  - Drug ineffective [Not Recovered/Not Resolved]
  - Product availability issue [Not Recovered/Not Resolved]
  - Product physical issue [Unknown]
  - Off label use [Not Recovered/Not Resolved]
  - Lactose intolerance [Not Recovered/Not Resolved]
  - Gluten sensitivity [Not Recovered/Not Resolved]
  - Retching [Not Recovered/Not Resolved]
  - Product quality issue [Not Recovered/Not Resolved]
  - Wrong technique in product usage process [Not Recovered/Not Resolved]

NARRATIVE: CASE EVENT DATE: 20030101
